FAERS Safety Report 5469893-3 (Version None)
Quarter: 2007Q3

REPORT INFORMATION
  Report Type: 
  Country: None (occurrence: None)
  Receive Date: 20070927
  Receipt Date: 20070925
  Transmission Date: 20080115
  Serious: Yes (Other)
  Sender: FDA-Public Use
  Company Number: BR-ASTRAZENECA-2007UW22445

PATIENT
  Age: 70 Year
  Sex: Female
  Weight: 48 kg

DRUGS (8)
  1. SELOZOK [Suspect]
     Route: 048
     Dates: start: 20061101, end: 20070910
  2. MAREVAN [Concomitant]
     Indication: ANTICOAGULANT THERAPY
     Dosage: START DATE } 1 YEAR
     Route: 048
     Dates: end: 20070801
  3. LISINOPRIL [Concomitant]
     Indication: HYPERTENSION
     Dosage: START DATE } 1 YEAR
     Route: 048
     Dates: end: 20070801
  4. CLORANA [Concomitant]
     Indication: HYPERTENSION
     Dosage: START DATE } 1 YEAR
     Route: 048
     Dates: end: 20070801
  5. LASIX [Concomitant]
     Indication: DIURETIC THERAPY
     Dosage: START DATE } 1 YEAR
     Route: 048
     Dates: end: 20070801
  6. LASIX [Concomitant]
     Dosage: START DATE } 1 YEAR
     Route: 048
     Dates: end: 20070801
  7. COZAAR [Concomitant]
     Indication: HYPERTENSION
     Dosage: START DATE } 1 YEAR
     Route: 048
     Dates: end: 20070801
  8. COZAAR [Concomitant]
     Dosage: START DATE } 1 YEAR
     Route: 048
     Dates: end: 20070801

REACTIONS (8)
  - ABDOMINAL DISTENSION [None]
  - ABDOMINAL PAIN [None]
  - INSOMNIA [None]
  - PANCREATIC INJURY [None]
  - PRURITUS [None]
  - RASH [None]
  - RHINORRHOEA [None]
  - SKIN EXFOLIATION [None]
